FAERS Safety Report 9271148 (Version 3)
Quarter: 2014Q4

REPORT INFORMATION
  Report Type: Report from Study
  Country: VE (occurrence: VE)
  Receive Date: 20130506
  Receipt Date: 20141007
  Transmission Date: 20150529
  Serious: Yes (Death, Hospitalization)
  Sender: FDA-Public Use
  Company Number: PHHY2013VE043088

PATIENT
  Age: 88 Year
  Sex: Male

DRUGS (1)
  1. EXJADE [Suspect]
     Active Substance: DEFERASIROX
     Indication: IRON OVERLOAD
     Dosage: 500 MG, DAILY
     Route: 048
     Dates: start: 2012

REACTIONS (3)
  - Prostate cancer [Fatal]
  - Respiratory arrest [Fatal]
  - Haematemesis [Unknown]

NARRATIVE: CASE EVENT DATE: 20130120
